FAERS Safety Report 4874280-2 (Version None)
Quarter: 2006Q1

REPORT INFORMATION
  Report Type: 
  Country: None (occurrence: None)
  Receive Date: 20060106
  Receipt Date: 20050404
  Transmission Date: 20060701
  Serious: Yes (Hospitalization)
  Sender: FDA-Public Use
  Company Number: US-MERCK-0504USA00531

PATIENT
  Age: 73 Year
  Sex: Female
  Weight: 89 kg

DRUGS (6)
  1. VIOXX [Suspect]
     Indication: ARTHRITIS
     Route: 048
     Dates: start: 20001211, end: 20041004
  2. VIOXX [Suspect]
     Route: 048
     Dates: start: 20001211, end: 20041004
  3. VIOXX [Suspect]
     Indication: FIBROMYALGIA
     Route: 048
     Dates: start: 20001211, end: 20041004
  4. VIOXX [Suspect]
     Route: 048
     Dates: start: 20001211, end: 20041004
  5. TYLENOL [Concomitant]
     Route: 048
  6. ASPIRIN [Concomitant]
     Route: 048

REACTIONS (11)
  - ABDOMINAL PAIN [None]
  - ANGINA UNSTABLE [None]
  - CARDIAC DISORDER [None]
  - CHEST PAIN [None]
  - COUGH [None]
  - DEPRESSION [None]
  - DYSPNOEA [None]
  - MYOCARDIAL INFARCTION [None]
  - NASAL DISORDER [None]
  - STENT OCCLUSION [None]
  - VISUAL DISTURBANCE [None]
